FAERS Safety Report 17490022 (Version 1)
Quarter: 2020Q1

REPORT INFORMATION
  Report Type: Spontaneous
  Country: US (occurrence: US)
  Receive Date: 20200303
  Receipt Date: 20200303
  Transmission Date: 20200409
  Serious: No
  Sender: FDA-Public Use
  Company Number: US-AKORN PHARMACEUTICALS-2019AKN02042

PATIENT
  Age: 26 Year
  Sex: Female
  Weight: 58.96 kg

DRUGS (2)
  1. LO LOESTRIN (PRESUMED FE) [Concomitant]
  2. MYORISAN [Suspect]
     Active Substance: ISOTRETINOIN
     Indication: ACNE
     Dosage: 40 MG, 1X/DAY
     Route: 048
     Dates: start: 20190802, end: 2019

REACTIONS (7)
  - Urinary tract infection [Recovered/Resolved]
  - Burning sensation [Recovered/Resolved]
  - Skin burning sensation [Recovered/Resolved]
  - Off label use [Recovered/Resolved]
  - Blister [Recovered/Resolved]
  - Dry skin [Not Recovered/Not Resolved]
  - Back pain [Recovered/Resolved]

NARRATIVE: CASE EVENT DATE: 201908
